FAERS Safety Report 5971855-4 (Version None)
Quarter: 2008Q4

REPORT INFORMATION
  Report Type: 
  Country: None (occurrence: None)
  Receive Date: 20081201
  Receipt Date: 20081124
  Transmission Date: 20090506
  Serious: Yes (Other)
  Sender: FDA-Public Use
  Company Number: US-ASTRAZENECA-2008UW10033

PATIENT
  Age: 83 Year
  Sex: Male
  Weight: 68 kg

DRUGS (5)
  1. CRESTOR [Suspect]
     Indication: BLOOD CHOLESTEROL
     Route: 048
     Dates: start: 20041001
  2. ASPIRIN [Concomitant]
  3. PLAVIX [Concomitant]
  4. COREG [Concomitant]
  5. CIPRO [Concomitant]
     Indication: URINARY TRACT DISORDER

REACTIONS (2)
  - MUSCLE SPASMS [None]
  - TENDONITIS [None]
